FAERS Safety Report 6765084-4 (Version None)
Quarter: 2010Q2

REPORT INFORMATION
  Report Type: 
  Country: None (occurrence: None)
  Receive Date: 20100609
  Receipt Date: 20100609
  Transmission Date: 20101027
  Serious: Yes (Hospitalization)
  Sender: FDA-Public Use
  Company Number: None

PATIENT
  Age: 77 Year
  Sex: Male
  Weight: 112.0385 kg

DRUGS (1)
  1. IRINOTECAN 100MG/5ML NOVAPLUS [Suspect]
     Indication: COLON CANCER STAGE IV
     Dosage: 410 MG Q2 WEEKS IV DRIP
     Route: 041
     Dates: start: 20100608, end: 20100608

REACTIONS (6)
  - CHILLS [None]
  - FLUSHING [None]
  - HYPOAESTHESIA [None]
  - INFUSION RELATED REACTION [None]
  - PARAESTHESIA [None]
  - PARAESTHESIA ORAL [None]
